FAERS Safety Report 9982289 (Version 1)
Quarter: 2014Q1

REPORT INFORMATION
  Report Type: Report from Study
  Country: US (occurrence: US)
  Receive Date: 20140307
  Receipt Date: 20140307
  Transmission Date: 20141002
  Serious: No
  Sender: FDA-Public Use
  Company Number: US-ABBVIE-13P-163-1179058-00

PATIENT
  Age: 51 Year
  Sex: Male

DRUGS (9)
  1. HUMIRA [Suspect]
     Indication: PSORIASIS
     Dates: start: 20131122
  2. ENABLEX [Concomitant]
     Indication: BLADDER SPASM
  3. FLOMAX [Concomitant]
     Indication: BLADDER SPASM
  4. ABILIFY [Concomitant]
     Indication: DEPRESSION
  5. CITALOPRAM [Concomitant]
     Indication: DEPRESSION
  6. AMLODIPINE [Concomitant]
     Indication: HYPERTENSION
  7. GABAPENTIN [Concomitant]
     Indication: CONVULSION PROPHYLAXIS
  8. ATORVASTATIN [Concomitant]
     Indication: BLOOD CHOLESTEROL INCREASED
  9. MULTIVITAMIN [Concomitant]
     Indication: PRODUCT USED FOR UNKNOWN INDICATION

REACTIONS (1)
  - Injection site bruising [Recovering/Resolving]
